FAERS Safety Report 18581817 (Version 1)
Quarter: 2020Q4

REPORT INFORMATION
  Report Type: Spontaneous
  Country: US (occurrence: US)
  Receive Date: 20201202
  Receipt Date: 20201202
  Transmission Date: 20210114
  Serious: Yes (Hospitalization)
  Sender: FDA-Public Use
  Company Number: None

PATIENT
  Age: 64 Year
  Sex: Male

DRUGS (2)
  1. PIPERACILLIN/TAZOBACTAM (PIPERACILLIN NA 3GM/TAZOBACTAM NA 0.375GM/VIL [Suspect]
     Active Substance: PIPERACILLIN SODIUM\TAZOBACTAM SODIUM
     Indication: WOUND INFECTION
     Route: 042
     Dates: start: 20201113, end: 20201116
  2. VANCOMYCIN (VANCOMYCIN HCL 1.5GM/VIL INJ) [Suspect]
     Active Substance: VANCOMYCIN
     Indication: WOUND INFECTION
     Route: 042
     Dates: start: 20201113, end: 20201116

REACTIONS (4)
  - Renal tubular necrosis [None]
  - Osteomyelitis [None]
  - Fluid overload [None]
  - Diabetic foot [None]

NARRATIVE: CASE EVENT DATE: 20201116
